FAERS Safety Report 11981179 (Version 3)
Quarter: 2017Q2

REPORT INFORMATION
  Report Type: Spontaneous
  Country: FR (occurrence: FR)
  Receive Date: 20160129
  Receipt Date: 20170419
  Transmission Date: 20170829
  Serious: Yes (Hospitalization)
  Sender: FDA-Public Use
  Company Number: FR-ASTRAZENECA-2016SE08754

PATIENT
  Age: 692 Month
  Sex: Female

DRUGS (11)
  1. CORDARONE [Suspect]
     Active Substance: AMIODARONE HYDROCHLORIDE
     Indication: ATRIAL FIBRILLATION
     Dosage: 200 MG, UNKNOWN FREQUENCY, 5 DAYS PER WEEK
     Route: 048
     Dates: start: 201508
  2. INEXIUM [Suspect]
     Active Substance: ESOMEPRAZOLE
     Indication: GASTRIC ULCER
     Route: 048
     Dates: end: 201601
  3. PREDNISOLONE. [Concomitant]
     Active Substance: PREDNISOLONE
     Route: 048
  4. ALPRAZOLAM. [Concomitant]
     Active Substance: ALPRAZOLAM
     Dosage: IF REQUIRED
  5. TEMODAL [Suspect]
     Active Substance: TEMOZOLOMIDE
     Indication: GLIOBLASTOMA
     Dosage: 135 MG/ DAILY, 5 DAYS PER WEEK
     Route: 048
     Dates: start: 201507, end: 201508
  6. TEMODAL [Suspect]
     Active Substance: TEMOZOLOMIDE
     Indication: GLIOBLASTOMA
     Dosage: 260MG/DAILY, 5 DAYS PER WEEK
     Route: 048
     Dates: start: 201509, end: 201510
  7. KEPPRA [Suspect]
     Active Substance: LEVETIRACETAM
     Route: 048
  8. AMLOR [Suspect]
     Active Substance: AMLODIPINE BESYLATE
     Indication: HYPERTENSION
     Route: 048
     Dates: start: 201508
  9. INNOHEP [Suspect]
     Active Substance: TINZAPARIN SODIUM
     Route: 058
     Dates: start: 201508, end: 20151130
  10. CARDENSIEL [Concomitant]
     Active Substance: BISOPROLOL FUMARATE
     Indication: HYPERTENSION
     Route: 048
     Dates: start: 201508
  11. METOCLOPRAMIDE. [Concomitant]
     Active Substance: METOCLOPRAMIDE
     Dosage: IF REQUIRED

REACTIONS (5)
  - Agranulocytosis [Recovered/Resolved]
  - Pancytopenia [Recovering/Resolving]
  - Pyrexia [Recovered/Resolved]
  - Glioblastoma [Unknown]
  - Febrile bone marrow aplasia [Unknown]

NARRATIVE: CASE EVENT DATE: 201505
